FAERS Safety Report 5022021-0 (Version None)
Quarter: 2006Q2

REPORT INFORMATION
  Report Type: 
  Country: None (occurrence: None)
  Receive Date: 20060425
  Receipt Date: 20060213
  Transmission Date: 20061013
  Serious: Yes (Hospitalization)
  Sender: FDA-Public Use
  Company Number: TEST00206000509

PATIENT
  Age: 40 Year
  Sex: Male
  Weight: 113 kg

DRUGS (2)
  1. ANDROGEL (TESTOSTERONE 1% GEL) [Suspect]
     Indication: BLOOD TESTOSTERONE DECREASED
     Dosage: 3.75 GRAM(S) QD TRANSCUTANEOUS DAILY - SEE IMAGE
     Dates: start: 20051101, end: 20051129
  2. ANDROGEL (TESTOSTERONE 1% GEL) [Suspect]
     Indication: BLOOD TESTOSTERONE DECREASED
     Dosage: 3.75 GRAM(S) QD TRANSCUTANEOUS DAILY - SEE IMAGE
     Dates: start: 20060201, end: 20060201

REACTIONS (1)
  - HYPERTENSION [None]
